FAERS Safety Report 21044105 (Version 2)
Quarter: 2022Q3

REPORT INFORMATION
  Report Type: Spontaneous
  Country: GB (occurrence: GB)
  Receive Date: 20220705
  Receipt Date: 20220808
  Transmission Date: 20221027
  Serious: Yes (Hospitalization)
  Sender: FDA-Public Use
  Company Number: GB-MLMSERVICE-20220623-3634184-1

PATIENT
  Age: 43 Year
  Sex: Female

DRUGS (3)
  1. DIAZEPAM [Suspect]
     Active Substance: DIAZEPAM
     Indication: Product used for unknown indication
     Route: 065
  2. OLANZAPINE [Suspect]
     Active Substance: OLANZAPINE
     Indication: Product used for unknown indication
     Route: 065
  3. MIRTAZAPINE [Suspect]
     Active Substance: MIRTAZAPINE
     Indication: Product used for unknown indication
     Route: 065

REACTIONS (5)
  - Cardiogenic shock [Recovering/Resolving]
  - Serotonin syndrome [Unknown]
  - Toxicity to various agents [Unknown]
  - Generalised tonic-clonic seizure [Unknown]
  - Intentional overdose [Unknown]
